FAERS Safety Report 6817020-X (Version None)
Quarter: 2010Q3

REPORT INFORMATION
  Report Type: 
  Country: None (occurrence: None)
  Receive Date: 20100706
  Receipt Date: 20100701
  Transmission Date: 20110219
  Serious: Yes (Other)
  Sender: FDA-Public Use
  Company Number: AR-ROCHE-712931

PATIENT
  Sex: Male

DRUGS (2)
  1. CAPECITABINE [Suspect]
     Indication: GASTRIC CANCER
     Dosage: DOSE REPORTED AS 2 GR/M^2
     Route: 048
     Dates: start: 20100429, end: 20100531
  2. CARBOPLATINO [Concomitant]
     Indication: GASTRIC CANCER
     Dates: end: 20100531

REACTIONS (2)
  - BLOOD DISORDER [None]
  - MALIGNANT NEOPLASM PROGRESSION [None]
